FAERS Safety Report 19172024 (Version 2)
Quarter: 2021Q2

REPORT INFORMATION
  Report Type: Report from Study
  Country: US (occurrence: US)
  Receive Date: 20210423
  Receipt Date: 20210622
  Transmission Date: 20210717
  Serious: No
  Sender: FDA-Public Use
  Company Number: NVSC2021US088595

PATIENT
  Sex: Female

DRUGS (1)
  1. KESIMPTA [Suspect]
     Active Substance: OFATUMUMAB
     Indication: RELAPSING-REMITTING MULTIPLE SCLEROSIS
     Dosage: 20 MG/KG (BENEATH THE SKIN USUALLY VIA INJECTION)
     Route: 058
     Dates: start: 20210324

REACTIONS (2)
  - Injection site haemorrhage [Unknown]
  - Memory impairment [Unknown]
